FAERS Safety Report 20744702 (Version 1)
Quarter: 2022Q2

REPORT INFORMATION
  Report Type: Spontaneous
  Country: IT (occurrence: IT)
  Receive Date: 20220425
  Receipt Date: 20220425
  Transmission Date: 20220720
  Serious: Yes (Hospitalization, Other)
  Sender: FDA-Public Use
  Company Number: IT-GRANULES-IT-2022GRALIT00089

PATIENT
  Age: 39 Year
  Sex: Female

DRUGS (1)
  1. SERTRALINE HYDROCHLORIDE [Suspect]
     Active Substance: SERTRALINE HYDROCHLORIDE
     Indication: Depression
     Route: 065

REACTIONS (2)
  - Acute generalised exanthematous pustulosis [Recovered/Resolved]
  - Photosensitivity reaction [Recovered/Resolved]
